FAERS Safety Report 16930148 (Version 2)
Quarter: 2019Q4

REPORT INFORMATION
  Report Type: Report from Study
  Country: US (occurrence: US)
  Receive Date: 20191017
  Receipt Date: 20191018
  Transmission Date: 20200122
  Serious: Yes (Hospitalization)
  Sender: FDA-Public Use
  Company Number: NVSC2019US004552

PATIENT
  Age: 34 Year
  Sex: Male
  Weight: 64.49 kg

DRUGS (6)
  1. TYVASO [Suspect]
     Active Substance: TREPROSTINIL
     Indication: PULMONARY ARTERIAL HYPERTENSION
     Dosage: 3-9 BREATHS, QID
     Route: 055
     Dates: start: 20161130
  2. TYVASO [Suspect]
     Active Substance: TREPROSTINIL
     Dosage: 3-9 BREATHS, QID
     Route: 055
  3. ORENITRAM [Suspect]
     Active Substance: TREPROSTINIL
     Dosage: 3.75 MG, TID (OTHER CONCENTRATION: 1 MG AND 0.125 MG)
     Route: 048
  4. ORENITRAM [Suspect]
     Active Substance: TREPROSTINIL
     Indication: PULMONARY ARTERIAL HYPERTENSION
     Dosage: 3.75 MG, TID (OTHER CONCENTRATION: 1 MG AND 0.125 MG)
     Route: 048
     Dates: start: 20150223
  5. LETAIRIS [Concomitant]
     Active Substance: AMBRISENTAN
     Indication: PRODUCT USED FOR UNKNOWN INDICATION
     Route: 065
  6. TREPROSTINIL. [Suspect]
     Active Substance: TREPROSTINIL
     Indication: PULMONARY ARTERIAL HYPERTENSION
     Dosage: 20 NG/KG/MIN, CONTINUOUS
     Route: 042
     Dates: start: 20161130

REACTIONS (1)
  - Asthenia [Recovering/Resolving]

NARRATIVE: CASE EVENT DATE: 20190920
